FAERS Safety Report 4715149-3 (Version None)
Quarter: 2005Q3

REPORT INFORMATION
  Report Type: 
  Country: None (occurrence: None)
  Receive Date: 20050715
  Receipt Date: 20041203
  Transmission Date: 20060218
  Serious: Yes (Other)
  Sender: FDA-Public Use
  Company Number: GB-GLAXOSMITHKLINE-B0359734A

PATIENT
  Sex: Female

DRUGS (2)
  1. SEROXAT [Suspect]
     Route: 065
     Dates: start: 20001011, end: 20020801
  2. TRIFLUOPERAZINE HCL [Concomitant]
     Route: 065

REACTIONS (9)
  - AGGRESSION [None]
  - CONSTIPATION [None]
  - DRUG WITHDRAWAL SYNDROME [None]
  - HEADACHE [None]
  - INTENTIONAL SELF-INJURY [None]
  - NOCTURIA [None]
  - POLYURIA [None]
  - SUICIDAL IDEATION [None]
  - THIRST [None]
